FAERS Safety Report 9286056 (Version 6)
Quarter: 2013Q3

REPORT INFORMATION
  Report Type: Spontaneous
  Country: US (occurrence: None)
  Receive Date: 20130508
  Receipt Date: 20130819
  Transmission Date: 20140515
  Serious: Yes (Hospitalization, Other)
  Sender: FDA-Public Use
  Company Number: AUR-APL-2013-03883

PATIENT
  Age: 77 Year
  Sex: Female
  Weight: 72.56 kg

DRUGS (12)
  1. LOSARTAN [Suspect]
     Indication: HYPERTENSION
     Dosage: 25 MG (12.5 MG,2 IN 1 D),ORAL
     Route: 048
     Dates: start: 20121102
  2. LOSARTAN [Suspect]
     Indication: ATRIAL FIBRILLATION
     Dosage: 25 MG (12.5 MG,2 IN 1 D),ORAL
     Route: 048
     Dates: start: 20121102
  3. AMIODARONE [Suspect]
     Indication: PRODUCT USED FOR UNKNOWN INDICATION
     Dates: end: 201303
  4. WARFARIN [Suspect]
     Indication: PRODUCT USED FOR UNKNOWN INDICATION
     Dates: end: 201303
  5. SYNTHROID (LEVOTHYROXINE SODIUM) [Suspect]
     Indication: PRODUCT USED FOR UNKNOWN INDICATION
  6. MULTAQ [Suspect]
     Indication: PRODUCT USED FOR UNKNOWN INDICATION
     Dates: start: 20130312
  7. CENTRUM SILVER (CENTRUM SILVER/01292501/) [Concomitant]
  8. FISH OIL (FISH OIL) [Concomitant]
  9. VITAMIN D3 (COLECALCIFEROL) [Concomitant]
  10. MAGNESIUM (MAGNESIUM) [Concomitant]
  11. ASPIRIN (ACETYLSALICYLIC ACID) [Concomitant]
  12. CRANBERRY (VACCINIUM MACROCARPON) [Concomitant]

REACTIONS (6)
  - Feeling cold [None]
  - Nervousness [None]
  - Supraventricular extrasystoles [None]
  - Tricuspid valve incompetence [None]
  - Dilatation atrial [None]
  - Drug interaction [None]
